FAERS Safety Report 6628312-1 (Version None)
Quarter: 2010Q1

REPORT INFORMATION
  Report Type: 
  Country: None (occurrence: None)
  Receive Date: 20100311
  Receipt Date: 20100305
  Transmission Date: 20100710
  Serious: Yes (Hospitalization)
  Sender: FDA-Public Use
  Company Number: NL-ROCHE-680940

PATIENT
  Sex: Female

DRUGS (3)
  1. AVASTIN [Suspect]
     Indication: BREAST CANCER
     Route: 042
     Dates: start: 20090701
  2. AVASTIN [Suspect]
     Dosage: MONOTHERAPY
     Route: 042
     Dates: start: 20091201
  3. TAXOL [Concomitant]
     Dates: start: 20090101, end: 20090101

REACTIONS (1)
  - CARDIOMYOPATHY [None]
